FAERS Safety Report 7568272-2 (Version None)
Quarter: 2011Q2

REPORT INFORMATION
  Report Type: 
  Country: None (occurrence: None)
  Receive Date: 20110617
  Receipt Date: 20110613
  Transmission Date: 20111010
  Serious: Yes (Death, Other)
  Sender: FDA-Public Use
  Company Number: ALA_02573_2011

PATIENT
  Sex: Female

DRUGS (1)
  1. REGLAN [Suspect]
     Indication: PRODUCT USED FOR UNKNOWN INDICATION
     Dosage: 10 MG ORAL
     Route: 048
     Dates: start: 20030801, end: 20100101

REACTIONS (4)
  - ECONOMIC PROBLEM [None]
  - PARKINSONISM [None]
  - EMOTIONAL DISORDER [None]
  - PARKINSON'S DISEASE [None]
